FAERS Safety Report 11772061 (Version 1)
Quarter: 2015Q4

REPORT INFORMATION
  Report Type: Spontaneous
  Country: GB (occurrence: GB)
  Receive Date: 20151124
  Receipt Date: 20151124
  Transmission Date: 20160304
  Serious: Yes (Other)
  Sender: FDA-Public Use
  Company Number: GB-JNJFOC-20151117912

PATIENT
  Age: 68 Year
  Sex: Male
  Weight: 112 kg

DRUGS (6)
  1. EZETIMIBE. [Concomitant]
     Active Substance: EZETIMIBE
     Dosage: DOSE: 10
     Route: 065
  2. HUMULIN I [Concomitant]
     Active Substance: INSULIN HUMAN
     Route: 065
  3. OMEPRAZOLE. [Concomitant]
     Active Substance: OMEPRAZOLE
     Dosage: DOSE:10
     Route: 065
  4. CANAGLIFLOZIN [Suspect]
     Active Substance: CANAGLIFLOZIN
     Indication: INSULIN-REQUIRING TYPE 2 DIABETES MELLITUS
     Dosage: DOSE:100
     Route: 048
     Dates: start: 20151102, end: 20151106
  5. LOSARTAN. [Concomitant]
     Active Substance: LOSARTAN
     Dosage: DOSE: 100
     Route: 065
  6. METFORMIN [Concomitant]
     Active Substance: METFORMIN HYDROCHLORIDE
     Route: 065

REACTIONS (2)
  - Oral mucosal blistering [Not Recovered/Not Resolved]
  - Tongue blistering [Not Recovered/Not Resolved]

NARRATIVE: CASE EVENT DATE: 20151103
